FAERS Safety Report 5630499-4 (Version None)
Quarter: 2008Q1

REPORT INFORMATION
  Report Type: 
  Country: None (occurrence: None)
  Receive Date: 20080219
  Receipt Date: 20080207
  Transmission Date: 20080703
  Serious: Yes (Hospitalization)
  Sender: FDA-Public Use
  Company Number: FR-AMGEN-US254982

PATIENT
  Sex: Male

DRUGS (1)
  1. ENBREL [Suspect]
     Indication: ANKYLOSING SPONDYLITIS
     Route: 058
     Dates: start: 20041201, end: 20070501

REACTIONS (6)
  - CROHN'S DISEASE [None]
  - GASTROINTESTINAL PERFORATION [None]
  - INTESTINAL OBSTRUCTION [None]
  - PERITONITIS [None]
  - PNEUMONIA ASPIRATION [None]
  - POST PROCEDURAL SEPSIS [None]
